FAERS Safety Report 15614229 (Version 1)
Quarter: 2018Q4

REPORT INFORMATION
  Report Type: Spontaneous
  Country: US (occurrence: US)
  Receive Date: 20181113
  Receipt Date: 20181113
  Transmission Date: 20190205
  Serious: No
  Sender: FDA-Public Use
  Company Number: US-PFIZER INC-2018458689

PATIENT
  Sex: Female

DRUGS (1)
  1. LYRICA [Suspect]
     Active Substance: PREGABALIN
     Indication: NEURALGIA
     Dosage: 6 DF, UNK (6 PILLS)
     Dates: start: 2012

REACTIONS (3)
  - Nausea [Unknown]
  - Visual impairment [Unknown]
  - Dizziness [Unknown]

NARRATIVE: CASE EVENT DATE: 2012
